FAERS Safety Report 7206373-9 (Version None)
Quarter: 2011Q1

REPORT INFORMATION
  Report Type: 
  Country: None (occurrence: None)
  Receive Date: 20110103
  Receipt Date: 20110103
  Transmission Date: 20110831
  Serious: Yes (Hospitalization)
  Sender: FDA-Public Use
  Company Number: PHHO2007DE07987

PATIENT
  Sex: Male
  Weight: 101 kg

DRUGS (1)
  1. CERTICAN [Suspect]
     Indication: CONGENITAL CYSTIC KIDNEY DISEASE
     Dosage: UNK
     Route: 048
     Dates: start: 20070425

REACTIONS (3)
  - ABDOMINAL PAIN UPPER [None]
  - CYST DRAINAGE [None]
  - GASTRITIS [None]
